FAERS Safety Report 23168507 (Version 1)
Quarter: 2023Q4

REPORT INFORMATION
  Report Type: Report from Study
  Country: US (occurrence: US)
  Receive Date: 20231110
  Receipt Date: 20231110
  Transmission Date: 20240110
  Serious: Yes (Hospitalization, Other)
  Sender: FDA-Public Use
  Company Number: US-ABBVIE-5486473

PATIENT
  Sex: Female

DRUGS (1)
  1. HUMIRA [Suspect]
     Active Substance: ADALIMUMAB
     Indication: Psoriatic arthropathy
     Dosage: CITRATE FREE
     Route: 058
     Dates: start: 20231018, end: 20231102

REACTIONS (5)
  - Seroma [Recovering/Resolving]
  - Incision site discharge [Unknown]
  - Dermatitis contact [Unknown]
  - Wound [Unknown]
  - Incision site erosion [Unknown]

NARRATIVE: CASE EVENT DATE: 20230101
